FAERS Safety Report 4335546-8 (Version None)
Quarter: 2004Q2

REPORT INFORMATION
  Report Type: 
  Country: None (occurrence: None)
  Receive Date: 20040406
  Receipt Date: 20040323
  Transmission Date: 20050107
  Serious: Yes (Hospitalization)
  Sender: FDA-Public Use
  Company Number: A0504818A

PATIENT
  Age: 60 Year
  Sex: Female

DRUGS (7)
  1. NICORETTE [Suspect]
     Indication: EX-SMOKER
     Dosage: 2 MG / TWELVE TIMES PER DAY / TRAN
     Route: 062
     Dates: start: 19990101
  2. NICORETTE [Suspect]
     Indication: EX-SMOKER
     Dosage: 4 MG / TWELVE TIMES PER DAY / TRAN
     Route: 062
     Dates: start: 19940101, end: 19990101
  3. THYROXINE SODIUM [Concomitant]
  4. BENAZEPRIL HCL [Concomitant]
  5. CONJUGATED ESTROGENS [Concomitant]
  6. POTASSIUM SALT [Concomitant]
  7. FLUTICASONE PROPIONATE [Concomitant]

REACTIONS (2)
  - LUNG ADENOCARCINOMA RECURRENT [None]
  - PAPILLARY THYROID CANCER [None]
